FAERS Safety Report 7052144-6 (Version None)
Quarter: 2010Q4

REPORT INFORMATION
  Report Type: 
  Country: None (occurrence: None)
  Receive Date: 20101019
  Receipt Date: 20101013
  Transmission Date: 20110411
  Serious: Yes (Life-Threatening, Hospitalization, Other)
  Sender: FDA-Public Use
  Company Number: PHHY2010FR68928

PATIENT
  Age: 66 Year
  Sex: Female

DRUGS (3)
  1. FEMARA [Suspect]
     Indication: BREAST CANCER
     Dosage: 2.5 MG DAILY
     Dates: start: 20100201
  2. FEMARA [Suspect]
     Dosage: UNK
     Dates: start: 20100301, end: 20101013
  3. LEXOMIL [Concomitant]
     Dosage: UNK

REACTIONS (4)
  - DEPRESSION [None]
  - LOSS OF CONSCIOUSNESS [None]
  - NAUSEA [None]
  - SUICIDE ATTEMPT [None]
